FAERS Safety Report 9110082 (Version 7)
Quarter: 2015Q2

REPORT INFORMATION
  Report Type: Spontaneous
  Country: US (occurrence: US)
  Receive Date: 20130222
  Receipt Date: 20150525
  Transmission Date: 20150821
  Serious: Yes (Hospitalization, Other)
  Sender: FDA-Public Use
  Company Number: US-JNJFOC-20130209119

PATIENT
  Age: 55 Year
  Sex: Male
  Weight: 93.44 kg

DRUGS (20)
  1. BISACODYL. [Concomitant]
     Active Substance: BISACODYL
     Indication: BOWEL PREPARATION
     Route: 048
  2. CHOLECALCIFEROL [Concomitant]
     Active Substance: CHOLECALCIFEROL
     Indication: VITAMIN SUPPLEMENTATION
     Dosage: DOSE: 2000 UNITS
     Route: 048
  3. TESTOSTERONE. [Concomitant]
     Active Substance: TESTOSTERONE
     Indication: PRODUCT USED FOR UNKNOWN INDICATION
     Route: 030
  4. FLUNISOLIDE. [Concomitant]
     Active Substance: FLUNISOLIDE
     Indication: MULTIPLE ALLERGIES
     Dosage: SPRAY 2 SPARYS IN EACH NOSTRIL TWICE A DAY
     Route: 045
  5. TOPAMAX [Suspect]
     Active Substance: TOPIRAMATE
     Indication: SEIZURE
     Dosage: 1/2 TABLET TWICE DAILY
     Route: 048
     Dates: start: 20120305, end: 20130107
  6. OMEPRAZOLE. [Concomitant]
     Active Substance: OMEPRAZOLE
     Indication: GASTROOESOPHAGEAL REFLUX DISEASE
     Route: 048
     Dates: start: 1999
  7. TOPIRAMATE. [Suspect]
     Active Substance: TOPIRAMATE
     Indication: SEIZURE
     Route: 048
     Dates: start: 201203, end: 201301
  8. METFORMIN [Concomitant]
     Active Substance: METFORMIN HYDROCHLORIDE
     Indication: BLOOD GLUCOSE FLUCTUATION
     Route: 048
     Dates: start: 2011
  9. CITALOPRAM HYDROBROMIDE. [Concomitant]
     Active Substance: CITALOPRAM HYDROBROMIDE
     Indication: ANXIETY
     Route: 048
     Dates: start: 2012
  10. CETIRIZINE HYDROCHLORIDE. [Concomitant]
     Active Substance: CETIRIZINE HYDROCHLORIDE
     Indication: MULTIPLE ALLERGIES
     Route: 048
  11. NICOTINE. [Concomitant]
     Active Substance: NICOTINE
     Indication: SMOKING CESSATION THERAPY
     Route: 062
  12. POLYETHYLENE GLYCOL 3350. [Concomitant]
     Active Substance: POLYETHYLENE GLYCOL 3350
     Indication: BOWEL PREPARATION
     Dosage: 14 DOSES OF 17 G BY MOUTH ONE TIME AS DIRECTED
     Route: 048
  13. ASPIRIN. [Concomitant]
     Active Substance: ASPIRIN
     Indication: MYOCARDIAL INFARCTION
     Route: 048
     Dates: start: 2011
  14. SILDENAFIL CITRATE. [Concomitant]
     Active Substance: SILDENAFIL CITRATE
     Dosage: TABLET TAKEN BY MOUTH AS DIRECTED 1 HOUR BEFORE INTERCOURSE
     Route: 048
  15. TESTOSTERONE CYPIONATE. [Concomitant]
     Active Substance: TESTOSTERONE CYPIONATE
     Indication: BLOOD TESTOSTERONE DECREASED
     Route: 030
  16. ASPIRIN. [Concomitant]
     Active Substance: ASPIRIN
     Indication: MYOCARDIAL INFARCTION
     Route: 048
     Dates: start: 2011
  17. CITALOPRAM HYDROBROMIDE. [Concomitant]
     Active Substance: CITALOPRAM HYDROBROMIDE
     Indication: AFFECTIVE DISORDER
     Route: 048
     Dates: start: 2012
  18. ZOLPIDEM TARTRATE. [Concomitant]
     Active Substance: ZOLPIDEM TARTRATE
     Indication: SLEEP DISORDER
     Route: 048
     Dates: start: 2011
  19. ALCOHOL PREPARATION PAD [Concomitant]
     Route: 061
  20. SIMVASTATIN. [Concomitant]
     Active Substance: SIMVASTATIN
     Indication: BLOOD CHOLESTEROL
     Dosage: STRENGTH OF TABLET: 80 MG; TAKE ONE HALF TABLET BY MOUTH
     Route: 048

REACTIONS (24)
  - Dental caries [Unknown]
  - Dental caries [Not Recovered/Not Resolved]
  - Coordination abnormal [Unknown]
  - Tooth fracture [Not Recovered/Not Resolved]
  - Decreased appetite [Unknown]
  - Paraesthesia [Unknown]
  - Somnolence [Unknown]
  - Tooth loss [Not Recovered/Not Resolved]
  - Wrong technique in drug usage process [Unknown]
  - Fatigue [Unknown]
  - Speech disorder [Unknown]
  - Gingival pain [Not Recovered/Not Resolved]
  - Disturbance in attention [Unknown]
  - Seizure [Unknown]
  - Abnormal loss of weight [Not Recovered/Not Resolved]
  - Vitamin D deficiency [Not Recovered/Not Resolved]
  - Gingival discolouration [Not Recovered/Not Resolved]
  - Dizziness [Unknown]
  - Chest pain [Unknown]
  - Confusional state [Unknown]
  - Nervousness [Unknown]
  - Electrocardiogram abnormal [Unknown]
  - Bradyphrenia [Unknown]
  - Amnesia [Unknown]

NARRATIVE: CASE EVENT DATE: 2012
